FAERS Safety Report 9390736 (Version 1)
Quarter: 2013Q3

REPORT INFORMATION
  Report Type: Spontaneous
  Country: US (occurrence: None)
  Receive Date: 20130705
  Receipt Date: 20130705
  Transmission Date: 20140515
  Serious: No
  Sender: FDA-Public Use
  Company Number: None

PATIENT
  Age: 67 Year
  Sex: Female
  Weight: 83.46 kg

DRUGS (1)
  1. INVOKANA [Suspect]
     Dates: start: 20130522, end: 20130528

REACTIONS (4)
  - Diarrhoea [None]
  - Dehydration [None]
  - Urinary tract infection [None]
  - Pyelonephritis [None]
